FAERS Safety Report 4906948-3 (Version None)
Quarter: 2006Q1

REPORT INFORMATION
  Report Type: 
  Country: None (occurrence: None)
  Receive Date: 20060207
  Receipt Date: 20060126
  Transmission Date: 20060701
  Serious: Yes (Hospitalization, Other)
  Sender: FDA-Public Use
  Company Number: HQWYE353902NOV05

PATIENT
  Age: 44 Year
  Sex: Female

DRUGS (8)
  1. MYLOTARG [Suspect]
     Indication: ACUTE MYELOID LEUKAEMIA RECURRENT
     Dosage: A SINGLE 9MG/M2 DOSE
     Route: 041
     Dates: start: 20050928, end: 20050928
  2. LAMIVUDINE [Concomitant]
  3. SULFAMETHOXAZOLE + TRIMETHOPRIM [Concomitant]
  4. DIFLUCAN (FLUCONAZOLE) [Concomitant]
  5. UNSPECIFIED H2 RECEPTOR ANTAGONIST (UNSPECIFIED H2 RECEPTOR ANTAGONIST [Concomitant]
  6. CIPROFLOXACIN HYDROCHLORIDE [Concomitant]
  7. ZOLPIDEM TARTRATE [Concomitant]
  8. MAXIPIME [Concomitant]

REACTIONS (13)
  - ALANINE AMINOTRANSFERASE INCREASED [None]
  - ASPARTATE AMINOTRANSFERASE INCREASED [None]
  - BLOOD ALKALINE PHOSPHATASE INCREASED [None]
  - BLOOD LACTATE DEHYDROGENASE INCREASED [None]
  - C-REACTIVE PROTEIN INCREASED [None]
  - CHILLS [None]
  - FEBRILE NEUTROPENIA [None]
  - FIBRIN DEGRADATION PRODUCTS INCREASED [None]
  - GAMMA-GLUTAMYLTRANSFERASE INCREASED [None]
  - PERFORMANCE STATUS DECREASED [None]
  - PROCTALGIA [None]
  - PROTEIN TOTAL DECREASED [None]
  - WHITE BLOOD CELL COUNT DECREASED [None]
